FAERS Safety Report 6618423-9 (Version None)
Quarter: 2010Q1

REPORT INFORMATION
  Report Type: 
  Country: None (occurrence: None)
  Receive Date: 20100308
  Receipt Date: 20100225
  Transmission Date: 20100710
  Serious: Yes (Death)
  Sender: FDA-Public Use
  Company Number: B0637877A

PATIENT

DRUGS (8)
  1. MELPHALAN [Suspect]
     Indication: MULTIPLE MYELOMA
     Dosage: 6MGM2 PER DAY
     Route: 048
  2. BORTEZOMIB [Suspect]
     Indication: MULTIPLE MYELOMA
     Dosage: 1.3MGM2 PER DAY
     Route: 042
  3. PREDNISONE [Suspect]
     Indication: MULTIPLE MYELOMA
     Dosage: 60MGM2 PER DAY
  4. ANTIEMETICS [Concomitant]
  5. ACYCLOVIR [Concomitant]
     Indication: PROPHYLAXIS
  6. GROWTH FACTOR [Concomitant]
  7. THALIDOMIDE [Concomitant]
  8. DEXAMETHASONE [Concomitant]

REACTIONS (1)
  - PNEUMONIA [None]
